FAERS Safety Report 13838499 (Version 2)
Quarter: 2017Q3

REPORT INFORMATION
  Report Type: Report from Study
  Country: CN (occurrence: CN)
  Receive Date: 20170807
  Receipt Date: 20170816
  Transmission Date: 20171127
  Serious: Yes (Death)
  Sender: FDA-Public Use
  Company Number: CN-ROCHE-1930795

PATIENT
  Sex: Male
  Weight: 60 kg

DRUGS (1)
  1. AVASTIN [Suspect]
     Active Substance: BEVACIZUMAB
     Indication: COLON CANCER
     Dosage: 300 MG AND 400 MG ALTERNATE USE
     Route: 041
     Dates: start: 20160831, end: 20170606

REACTIONS (6)
  - Haematochezia [Fatal]
  - Intestinal obstruction [Fatal]
  - Multiple organ dysfunction syndrome [Fatal]
  - Feeding disorder [Fatal]
  - Gait inability [Unknown]
  - Asthenia [Unknown]
